FAERS Safety Report 9819775 (Version 3)
Quarter: 2015Q4

REPORT INFORMATION
  Report Type: Report from Study
  Country: US (occurrence: US)
  Receive Date: 20140116
  Receipt Date: 20151103
  Transmission Date: 20160305
  Serious: Yes (Other)
  Sender: FDA-Public Use
  Company Number: US-ROCHE-1332319

PATIENT
  Sex: Male

DRUGS (8)
  1. LUCENTIS [Suspect]
     Active Substance: RANIBIZUMAB
     Indication: DIABETIC EYE DISEASE
     Dosage: RIGHT EYE
     Route: 050
  2. VORICONAZOLE. [Concomitant]
     Active Substance: VORICONAZOLE
     Dosage: 350 MCG/ 0.05 ML
     Route: 065
  3. TETRAVISC [Concomitant]
     Active Substance: TETRACAINE HYDROCHLORIDE
  4. LUCENTIS [Suspect]
     Active Substance: RANIBIZUMAB
     Indication: DIABETIC RETINOPATHY
  5. TETRACYCLINE [Concomitant]
     Active Substance: TETRACYCLINE
  6. LUCENTIS [Suspect]
     Active Substance: RANIBIZUMAB
     Indication: DIABETIC RETINAL OEDEMA
  7. BETADINE [Concomitant]
     Active Substance: POVIDONE-IODINE
     Route: 047
  8. LIDOCAINE. [Concomitant]
     Active Substance: LIDOCAINE
     Route: 061

REACTIONS (13)
  - Urinary fistula [Unknown]
  - Localised infection [Unknown]
  - Diabetes mellitus [Unknown]
  - Renal disorder [Unknown]
  - Blister [Recovered/Resolved]
  - Perirectal abscess [Unknown]
  - Blindness unilateral [Unknown]
  - Dysuria [Unknown]
  - Muscular weakness [Unknown]
  - Nervous system disorder [Unknown]
  - Chronic kidney disease [Unknown]
  - Urinary tract disorder [Unknown]
  - Visual acuity reduced [Unknown]
